FAERS Safety Report 10406683 (Version 3)
Quarter: 2014Q4

REPORT INFORMATION
  Report Type: Spontaneous
  Country: US (occurrence: US)
  Receive Date: 20140825
  Receipt Date: 20141002
  Transmission Date: 20150528
  Serious: No
  Sender: FDA-Public Use
  Company Number: US-PFIZER INC-2014232710

PATIENT
  Age: 55 Year
  Sex: Female
  Weight: 48.53 kg

DRUGS (7)
  1. LYRICA [Suspect]
     Active Substance: PREGABALIN
     Dosage: TWO IN MORNING AND ONE IN EVENING
     Route: 048
     Dates: start: 201408
  2. HYDROCODONE [Concomitant]
     Active Substance: HYDROCODONE
     Indication: PAIN
     Dosage: (10/325), 1 EVERY 6 HOURS PRN
     Route: 048
  3. LYRICA [Suspect]
     Active Substance: PREGABALIN
     Indication: NERVE INJURY
     Dosage: 50 MG, 2X/DAY
     Route: 048
     Dates: start: 20140724, end: 2014
  4. CELEBREX [Concomitant]
     Active Substance: CELECOXIB
     Indication: ARTHRITIS
     Dosage: 200 MG, 1X/DAY
     Route: 048
     Dates: start: 20140612, end: 201408
  5. MEDROL [Concomitant]
     Active Substance: METHYLPREDNISOLONE
     Dosage: UNK (DOSE PAK TAKE AS DIRECTED)
  6. LYRICA [Suspect]
     Active Substance: PREGABALIN
     Dosage: 75 MG ONE DOSE 2X/DAY
     Route: 048
  7. CELEBREX [Concomitant]
     Active Substance: CELECOXIB
     Indication: PAIN
     Dosage: 200 MG, 1X/DAY (WITH FOOD)
     Route: 048

REACTIONS (10)
  - Paraesthesia [Unknown]
  - Intentional product use issue [Unknown]
  - Activities of daily living impaired [Unknown]
  - Arthralgia [Unknown]
  - Pain [Unknown]
  - Musculoskeletal pain [Unknown]
  - Gait disturbance [Unknown]
  - Balance disorder [Unknown]
  - Myalgia [Unknown]
  - Neck pain [Unknown]

NARRATIVE: CASE EVENT DATE: 201408
